FAERS Safety Report 25986693 (Version 2)
Quarter: 2025Q4

REPORT INFORMATION
  Report Type: Spontaneous
  Country: US (occurrence: US)
  Receive Date: 20251031
  Receipt Date: 20251114
  Transmission Date: 20260119
  Serious: No
  Sender: BIOGEN
  Company Number: US-BIOGEN-2088444

PATIENT
  Sex: Female

DRUGS (1)
  1. PLEGRIDY [Suspect]
     Active Substance: PEGINTERFERON BETA-1A
     Indication: Product used for unknown indication

REACTIONS (2)
  - Device deployment issue [Unknown]
  - Device delivery system issue [Unknown]
